FAERS Safety Report 6779716-8 (Version None)
Quarter: 2010Q2

REPORT INFORMATION
  Report Type: 
  Country: None (occurrence: None)
  Receive Date: 20100618
  Receipt Date: 20100617
  Transmission Date: 20101027
  Serious: Yes (Death, Hospitalization)
  Sender: FDA-Public Use
  Company Number: PHHY2010TW11072

PATIENT
  Sex: Female

DRUGS (2)
  1. EXJADE [Suspect]
     Indication: MYELODYSPLASTIC SYNDROME
     Dosage: 1250 MG, UNK
     Route: 048
     Dates: start: 20090812
  2. EXJADE [Suspect]
     Indication: IRON OVERLOAD

REACTIONS (4)
  - DEATH [None]
  - DECREASED APPETITE [None]
  - MALAISE [None]
  - NASOPHARYNGITIS [None]
